FAERS Safety Report 24170592 (Version 1)
Quarter: 2024Q3

REPORT INFORMATION
  Report Type: Spontaneous
  Country: US (occurrence: None)
  Receive Date: 20240802
  Receipt Date: 20240802
  Transmission Date: 20241017
  Serious: Yes (Hospitalization)
  Sender: Public
  Company Number: None

PATIENT
  Sex: Female

DRUGS (10)
  1. AMBRISENTAN [Suspect]
     Active Substance: AMBRISENTAN
     Indication: Pulmonary arterial hypertension
     Dosage: OTHER QUANTITY : TAKE 1 TABLET;?FREQUENCY : DAILY;?
     Route: 048
     Dates: start: 20220310
  2. ALBUTEROL AER HFA [Concomitant]
  3. AMBRISENTAN [Concomitant]
     Active Substance: AMBRISENTAN
  4. ASPIRIN LOW TAB [Concomitant]
  5. BUMETANIDE [Concomitant]
     Active Substance: BUMETANIDE
  6. CARISOPRODOL [Concomitant]
     Active Substance: CARISOPRODOL
  7. FUROSEMIDE [Concomitant]
     Active Substance: FUROSEMIDE
  8. MELATONIN [Concomitant]
     Active Substance: MELATONIN
  9. METOPROLOL TARTRATE [Suspect]
     Active Substance: METOPROLOL TARTRATE
  10. NICOTINE TD DIS [Concomitant]

REACTIONS (3)
  - Oxygen saturation decreased [None]
  - Weight decreased [None]
  - Therapy interrupted [None]
